FAERS Safety Report 4406303-9 (Version None)
Quarter: 2004Q3

REPORT INFORMATION
  Report Type: 
  Country: None (occurrence: None)
  Receive Date: 20040723
  Receipt Date: 20030616
  Transmission Date: 20050211
  Serious: No
  Sender: FDA-Public Use
  Company Number: US-GLAXOSMITHKLINE-A0412462A

PATIENT
  Age: 51 Year
  Sex: Female

DRUGS (4)
  1. AVANDIA [Suspect]
     Route: 048
     Dates: start: 20010101, end: 20010601
  2. SYNTHROID [Concomitant]
  3. PRILOSEC [Concomitant]
  4. PAXIL [Concomitant]

REACTIONS (3)
  - DIABETES MELLITUS INADEQUATE CONTROL [None]
  - PRESCRIBED OVERDOSE [None]
  - VENTRICULAR EXTRASYSTOLES [None]
